FAERS Safety Report 9916296 (Version 1)
Quarter: 2014Q1

REPORT INFORMATION
  Report Type: Spontaneous
  Country: US (occurrence: US)
  Receive Date: 20140221
  Receipt Date: 20140221
  Transmission Date: 20141002
  Serious: No
  Sender: FDA-Public Use
  Company Number: US-BAYER-2014-022434

PATIENT
  Age: 44 Year
  Sex: Female
  Weight: 84.81 kg

DRUGS (3)
  1. ALEVE TABLET [Suspect]
     Indication: PAIN
     Dosage: 1 DF, PRN
     Route: 048
     Dates: start: 201308
  2. ALEVE TABLET [Suspect]
     Indication: PAIN
     Dosage: 3 DF, ONCE
     Route: 048
  3. NAPROXEN [Concomitant]
     Indication: ENDOMETRIOSIS

REACTIONS (1)
  - Incorrect dose administered [None]
